FAERS Safety Report 12604675 (Version 1)
Quarter: 2016Q3

REPORT INFORMATION
  Report Type: Spontaneous
  Country: US (occurrence: US)
  Receive Date: 20160728
  Receipt Date: 20160728
  Transmission Date: 20161109
  Serious: No
  Sender: FDA-Public Use
  Company Number: US-ENDO PHARMACEUTICALS INC.-2016-004056

PATIENT
  Age: 62 Year
  Sex: Male

DRUGS (1)
  1. BELBUCA [Suspect]
     Active Substance: BUPRENORPHINE HYDROCHLORIDE
     Indication: PAIN MANAGEMENT
     Route: 002
     Dates: start: 201606, end: 201606

REACTIONS (1)
  - Anger [Unknown]

NARRATIVE: CASE EVENT DATE: 201606
